FAERS Safety Report 6633699-X (Version None)
Quarter: 2010Q1

REPORT INFORMATION
  Report Type: 
  Country: None (occurrence: None)
  Receive Date: 20100314
  Receipt Date: 20100301
  Transmission Date: 20100710
  Serious: Yes (Hospitalization)
  Sender: FDA-Public Use
  Company Number: US-BRISTOL-MYERS SQUIBB COMPANY-14997290

PATIENT
  Age: 41 Year
  Sex: Male

DRUGS (2)
  1. ARIPIPRAZOLE [Suspect]
  2. SERTRALINE [Suspect]
     Dosage: 100MG THRICE DAILY

REACTIONS (1)
  - MYXOEDEMA COMA [None]
